FAERS Safety Report 23939463 (Version 1)
Quarter: 2024Q2

REPORT INFORMATION
  Report Type: Spontaneous
  Country: US (occurrence: US)
  Receive Date: 20240605
  Receipt Date: 20240605
  Transmission Date: 20240716
  Serious: No
  Sender: FDA-Public Use
  Company Number: US-TEVA-VS-3201691

PATIENT
  Age: 72 Year
  Sex: Female

DRUGS (1)
  1. AUSTEDO [Suspect]
     Active Substance: DEUTETRABENAZINE
     Indication: Product used for unknown indication
     Route: 048

REACTIONS (5)
  - Dry mouth [Unknown]
  - Dysgraphia [Unknown]
  - Stomatitis [Unknown]
  - Myoclonus [Unknown]
  - Tremor [Unknown]
